APPROVED DRUG PRODUCT: PHYTONADIONE
Active Ingredient: PHYTONADIONE
Strength: 1MG/0.5ML
Dosage Form/Route: INJECTABLE;INJECTION
Application: A083722 | Product #001 | TE Code: AB
Applicant: INTERNATIONAL MEDICATION SYSTEM
Approved: Approved Prior to Jan 1, 1982 | RLD: Yes | RS: Yes | Type: RX